FAERS Safety Report 9106914 (Version 2)
Quarter: 2013Q1

REPORT INFORMATION
  Report Type: Report from Study
  Country: US (occurrence: US)
  Receive Date: 20130221
  Receipt Date: 20130307
  Transmission Date: 20140127
  Serious: Yes (Hospitalization)
  Sender: FDA-Public Use
  Company Number: US-BRISTOL-MYERS SQUIBB COMPANY-17375650

PATIENT
  Age: 51 Year
  Sex: Female
  Weight: 50 kg

DRUGS (10)
  1. ERBITUX [Suspect]
     Indication: TONGUE NEOPLASM MALIGNANT STAGE UNSPECIFIED
     Dosage: 7NOV12-21NOV13-250MG/M2-WK?29JAN13 TO-20FEB13 250MG/M2-WK
     Route: 042
     Dates: start: 20121107
  2. VITAMIN C [Concomitant]
  3. ASPIRIN [Concomitant]
  4. PERIDEX [Concomitant]
  5. PEPCID [Concomitant]
  6. FENTANYL PATCH [Concomitant]
  7. ATIVAN [Concomitant]
  8. OXYCODONE [Concomitant]
  9. ZINC SULFATE [Concomitant]
  10. MVI [Concomitant]

REACTIONS (5)
  - Dysphagia [Recovering/Resolving]
  - Dehydration [Recovered/Resolved]
  - Nausea [Recovered/Resolved]
  - Vomiting [Recovered/Resolved]
  - Mucosal ulceration [Recovering/Resolving]
